FAERS Safety Report 16002796 (Version 1)
Quarter: 2019Q1

REPORT INFORMATION
  Report Type: Spontaneous
  Country: US (occurrence: US)
  Receive Date: 20190225
  Receipt Date: 20190225
  Transmission Date: 20190418
  Serious: No
  Sender: FDA-Public Use
  Company Number: US-SA-2019SA050090

PATIENT
  Age: 62 Year
  Sex: Female
  Weight: 114.3 kg

DRUGS (1)
  1. PRALUENT [Suspect]
     Active Substance: ALIROCUMAB
     Dosage: 75 MG, QOW
     Route: 058
     Dates: start: 201812

REACTIONS (2)
  - Vomiting [Unknown]
  - Abdominal pain upper [Unknown]
